FAERS Safety Report 22642180 (Version 1)
Quarter: 2023Q2

REPORT INFORMATION
  Report Type: Report from Study
  Country: IN (occurrence: IN)
  Receive Date: 20230626
  Receipt Date: 20230626
  Transmission Date: 20230721
  Serious: Yes (Other)
  Sender: FDA-Public Use
  Company Number: IN-002147023-NVSC2023IN143284

PATIENT
  Age: 36 Year
  Sex: Female

DRUGS (2)
  1. SIMULECT [Suspect]
     Active Substance: BASILIXIMAB
     Indication: Renal transplant
     Dosage: 20 MG
     Route: 042
     Dates: start: 20230526, end: 20230526
  2. SIMULECT [Suspect]
     Active Substance: BASILIXIMAB
     Dosage: 20 MG
     Route: 042
     Dates: start: 20230530, end: 20230530

REACTIONS (8)
  - Delayed graft function [Unknown]
  - Renal tubular necrosis [Unknown]
  - Kidney transplant rejection [Unknown]
  - Renal tubular injury [Unknown]
  - Tubulointerstitial nephritis [Unknown]
  - Lymphocytic infiltration [Unknown]
  - Plasma cell disorder [Unknown]
  - Arteritis [Unknown]

NARRATIVE: CASE EVENT DATE: 20230606
